FAERS Safety Report 23569719 (Version 1)
Quarter: 2024Q1

REPORT INFORMATION
  Report Type: Spontaneous
  Country: US (occurrence: US)
  Receive Date: 20240227
  Receipt Date: 20240227
  Transmission Date: 20240409
  Serious: Yes (Hospitalization, Other)
  Sender: FDA-Public Use
  Company Number: US-Accord-408722

PATIENT
  Sex: Female

DRUGS (3)
  1. CLONAZEPAM [Suspect]
     Active Substance: CLONAZEPAM
     Indication: Product used for unknown indication
     Dosage: ONE BOTTLE OF CLONAZEPAM
  2. ALPRAZOLAM [Suspect]
     Active Substance: ALPRAZOLAM
     Indication: Product used for unknown indication
     Dosage: ONE BOTTLE OF ALPRAZOLAM
  3. ZOLPIDEM [Suspect]
     Active Substance: ZOLPIDEM TARTRATE
     Indication: Product used for unknown indication
     Dosage: ONE BOTTLE OF ZOLPIDEM

REACTIONS (4)
  - Sinus bradycardia [Recovered/Resolved]
  - Mental status changes [Recovered/Resolved]
  - Intentional overdose [Unknown]
  - Suicide attempt [Unknown]
